FAERS Safety Report 21541544 (Version 2)
Quarter: 2022Q4

REPORT INFORMATION
  Report Type: Report from Study
  Country: KR (occurrence: KR)
  Receive Date: 20221102
  Receipt Date: 20221130
  Transmission Date: 20230112
  Serious: Yes (Other)
  Sender: FDA-Public Use
  Company Number: KR-TAKEDA-2022TUS078618

PATIENT
  Sex: Male
  Weight: 64.8 kg

DRUGS (19)
  1. IXAZOMIB [Suspect]
     Active Substance: IXAZOMIB
     Indication: Plasma cell myeloma
     Dosage: 3 MILLIGRAM
     Route: 065
     Dates: start: 20220314
  2. DEXAMETHASONE [Suspect]
     Active Substance: DEXAMETHASONE
     Indication: Plasma cell myeloma
     Dosage: 20 MILLIGRAM
     Route: 065
     Dates: start: 20220314
  3. LENALIDOMIDE [Suspect]
     Active Substance: LENALIDOMIDE
     Indication: Plasma cell myeloma
     Dosage: 20 MILLIGRAM
     Route: 065
     Dates: start: 20220314
  4. MEGACE F [Concomitant]
     Indication: Decreased appetite
     Dosage: 5 MILLILITER, QD
     Route: 048
     Dates: end: 20220328
  5. ULTRACET [Concomitant]
     Active Substance: ACETAMINOPHEN\TRAMADOL HYDROCHLORIDE
     Indication: Bone pain
     Dosage: UNK UNK, BID
     Route: 048
     Dates: start: 20220314, end: 20220515
  6. EXONIN [Concomitant]
     Indication: Bone pain
     Dosage: 75 MILLIGRAM, BID
     Route: 048
     Dates: start: 20220314, end: 20220411
  7. PLAVIX [Concomitant]
     Active Substance: CLOPIDOGREL BISULFATE
     Indication: Angina pectoris
     Dosage: 75 MILLIGRAM, QD
     Route: 048
     Dates: end: 20220518
  8. THIOCTACID HR [Concomitant]
     Indication: Polyneuropathy
     Dosage: 600 MILLIGRAM, QD
     Route: 048
     Dates: end: 20220411
  9. MIRAPEX [Concomitant]
     Active Substance: PRAMIPEXOLE DIHYDROCHLORIDE
     Indication: Restless legs syndrome
     Dosage: 0.125 MILLIGRAM, QD
     Route: 048
     Dates: end: 20220411
  10. NEXIUM [Concomitant]
     Active Substance: ESOMEPRAZOLE MAGNESIUM
     Indication: Abdominal discomfort
     Dosage: 20 MILLIGRAM, QD
     Route: 048
     Dates: start: 20220314, end: 20220523
  11. SULFAMETHOXAZOLE\TRIMETHOPRIM [Concomitant]
     Active Substance: SULFAMETHOXAZOLE\TRIMETHOPRIM
     Indication: Infection
     Dosage: UNK UNK, QD
     Route: 048
     Dates: start: 20220314, end: 20220415
  12. ZOLPIDEM TARTRATE [Concomitant]
     Active Substance: ZOLPIDEM TARTRATE
     Indication: Insomnia
     Dosage: 10 MILLIGRAM, QD
     Route: 048
     Dates: start: 20220314, end: 20220521
  13. VITAMINS [Concomitant]
     Active Substance: VITAMINS
     Indication: Decreased appetite
     Dosage: UNK UNK, QD
     Route: 042
     Dates: start: 20220404, end: 20220404
  14. FREAMINE III NOS [Concomitant]
     Active Substance: AMINO ACIDS
     Indication: Decreased appetite
     Dosage: 250 MILLILITER, QD
     Route: 042
     Dates: start: 20220404, end: 20220604
  15. NEUSTATIN R [Concomitant]
     Indication: Arteriosclerosis
     Dosage: 5 MILLIGRAM, QD
     Route: 048
  16. LINAGLIPTIN [Concomitant]
     Active Substance: LINAGLIPTIN
     Indication: Diabetes mellitus
     Dosage: 5 MILLIGRAM, QD
     Route: 048
  17. GLIATIN [Concomitant]
     Indication: Diabetes mellitus
     Dosage: 400 MILLIGRAM, QD
     Route: 048
  18. DAPAGLIFLOZIN [Concomitant]
     Active Substance: DAPAGLIFLOZIN
     Indication: Diabetes mellitus
     Dosage: 10 MILLIGRAM, QD
     Route: 048
  19. NEBISTOL [Concomitant]
     Indication: Hypertension
     Dosage: 1.25 MILLIGRAM, QD
     Route: 048

REACTIONS (1)
  - Delirium [Recovered/Resolved]

NARRATIVE: CASE EVENT DATE: 20220411
